FAERS Safety Report 15136518 (Version 1)
Quarter: 2018Q3

REPORT INFORMATION
  Report Type: Spontaneous
  Country: IT (occurrence: IT)
  Receive Date: 20180712
  Receipt Date: 20180712
  Transmission Date: 20181010
  Serious: Yes (Other)
  Sender: FDA-Public Use
  Company Number: IT-BAYER-2018-127797

PATIENT
  Age: 79 Year
  Sex: Male

DRUGS (1)
  1. STIVARGA [Suspect]
     Active Substance: REGORAFENIB
     Indication: ADENOCARCINOMA OF COLON
     Dosage: DAILY DOSE 120 MG
     Dates: start: 201611, end: 201707

REACTIONS (2)
  - Dysphonia [None]
  - Metastases to lung [None]

NARRATIVE: CASE EVENT DATE: 201707
